FAERS Safety Report 17752038 (Version 1)
Quarter: 2020Q2

REPORT INFORMATION
  Report Type: Spontaneous
  Country: FR (occurrence: FR)
  Receive Date: 20200506
  Receipt Date: 20200506
  Transmission Date: 20200714
  Serious: Yes (Hospitalization, Other)
  Sender: FDA-Public Use
  Company Number: NVSC2020FR122367

PATIENT
  Age: 63 Year
  Sex: Female

DRUGS (11)
  1. RAMIPRIL. [Concomitant]
     Active Substance: RAMIPRIL
     Indication: HYPERTENSION
     Dosage: 1 DF, QD
     Route: 048
     Dates: start: 201805
  2. NEURONTIN [Concomitant]
     Active Substance: GABAPENTIN
     Indication: TOXIC SKIN ERUPTION
     Dosage: 300 MG, 1X/DAY
     Route: 048
     Dates: start: 20190205
  3. PARACETAMOL [Concomitant]
     Active Substance: ACETAMINOPHEN
     Indication: PROPHYLAXIS
     Dosage: 1 G, UNK
     Route: 048
     Dates: start: 20190205, end: 20190208
  4. LANSOPRAZOLE. [Suspect]
     Active Substance: LANSOPRAZOLE
     Indication: PROPHYLAXIS
     Dosage: 60 MG, UNK
     Route: 065
  5. BACTRIM [Suspect]
     Active Substance: SULFAMETHOXAZOLE\TRIMETHOPRIM
     Indication: PRODUCT USED FOR UNKNOWN INDICATION
     Dosage: 1 DF, QD ( 3X/DAY (Q8HR))
     Route: 042
     Dates: start: 20190131, end: 20190203
  6. MACROGOL [Concomitant]
     Active Substance: POLYETHYLENE GLYCOLS
     Indication: PROPHYLAXIS
     Dosage: UNK
     Route: 048
     Dates: start: 20190205
  7. LANSOPRAZOLE. [Suspect]
     Active Substance: LANSOPRAZOLE
     Dosage: 15 MG, QD
     Route: 048
     Dates: start: 20190205, end: 20190508
  8. GABAPENTIN. [Suspect]
     Active Substance: GABAPENTIN
     Indication: TOXIC SKIN ERUPTION
     Dosage: 300 MG, 1X/DAY
     Route: 048
     Dates: start: 20190205
  9. BACTRIM [Suspect]
     Active Substance: SULFAMETHOXAZOLE\TRIMETHOPRIM
     Dosage: 1 UNK
     Route: 065
     Dates: start: 20190204, end: 20190208
  10. EFFEXOR [Concomitant]
     Active Substance: VENLAFAXINE HYDROCHLORIDE
     Indication: DEPRESSION
     Dosage: 38 MG, 1X/DAY
     Route: 048
     Dates: start: 201707
  11. PREDNISONE. [Concomitant]
     Active Substance: PREDNISONE
     Indication: PNEUMONIA
     Dosage: 80 MG, QD
     Route: 048
     Dates: start: 20190206, end: 20190208

REACTIONS (2)
  - Urinary tract infection [Recovered/Resolved]
  - Toxic skin eruption [Recovered/Resolved]

NARRATIVE: CASE EVENT DATE: 20190131
